FAERS Safety Report 22100355 (Version 1)
Quarter: 2023Q1

REPORT INFORMATION
  Report Type: Report from Study
  Country: US (occurrence: US)
  Receive Date: 20230315
  Receipt Date: 20230315
  Transmission Date: 20230417
  Serious: Yes (Hospitalization)
  Sender: FDA-Public Use
  Company Number: US-ABBVIE-4340120

PATIENT
  Sex: Female

DRUGS (1)
  1. IMBRUVICA [Suspect]
     Active Substance: IBRUTINIB
     Indication: Waldenstrom^s macroglobulinaemia
     Route: 048
     Dates: start: 202005

REACTIONS (4)
  - Syncope [Recovering/Resolving]
  - Heart rate decreased [Recovering/Resolving]
  - Loss of consciousness [Recovering/Resolving]
  - Blood pressure abnormal [Recovering/Resolving]
